FAERS Safety Report 9892495 (Version 1)
Quarter: 2014Q1

REPORT INFORMATION
  Report Type: Spontaneous
  Country: FR (occurrence: FR)
  Receive Date: 20140212
  Receipt Date: 20140212
  Transmission Date: 20141002
  Serious: Yes (Hospitalization)
  Sender: FDA-Public Use
  Company Number: FR-BAXTER-2014BAX006013

PATIENT
  Age: 52 Year
  Sex: Male

DRUGS (9)
  1. METRONIDAZOLE BAXTER 0,5 POUR CENT, SOLUTION INJECTABLE EN POCHE [Suspect]
     Indication: PRODUCT USED FOR UNKNOWN INDICATION
     Route: 065
     Dates: start: 20131217, end: 20131229
  2. BACTRIM FORTE [Suspect]
     Indication: PRODUCT USED FOR UNKNOWN INDICATION
     Route: 048
     Dates: start: 20131217, end: 20131226
  3. CEFOTAXIME PANPHARMA [Suspect]
     Indication: PRODUCT USED FOR UNKNOWN INDICATION
     Route: 065
     Dates: start: 20131219, end: 20131229
  4. KALETRA [Suspect]
     Indication: HIV INFECTION
     Route: 065
     Dates: start: 201303, end: 20131229
  5. RETROVIR [Suspect]
     Indication: HIV INFECTION
     Route: 065
     Dates: start: 201303, end: 20131226
  6. CEFTRIAXONE SODIUM [Suspect]
     Indication: PRODUCT USED FOR UNKNOWN INDICATION
     Route: 051
     Dates: start: 20131217, end: 20131217
  7. ZIAGEN [Concomitant]
     Indication: HIV INFECTION
     Route: 065
     Dates: start: 201303
  8. WELLVONE [Concomitant]
     Indication: PRODUCT USED FOR UNKNOWN INDICATION
     Route: 065
     Dates: start: 20131227
  9. ISENTRESS [Concomitant]
     Indication: HIV INFECTION
     Route: 065
     Dates: start: 20131229

REACTIONS (1)
  - Pancytopenia [Recovering/Resolving]
